FAERS Safety Report 7970493-1 (Version None)
Quarter: 2011Q4

REPORT INFORMATION
  Report Type: 
  Country: None (occurrence: None)
  Receive Date: 20111212
  Receipt Date: 20111212
  Transmission Date: 20120403
  Serious: Yes (Hospitalization)
  Sender: FDA-Public Use
  Company Number: PHHO2011DE16693

PATIENT
  Sex: Male
  Weight: 112 kg

DRUGS (6)
  1. AFINITOR [Suspect]
     Indication: ANGIOMYOLIPOMA
     Dosage: CODE NOT BROKEN
     Route: 048
     Dates: start: 20111012
  2. BLINDED PLACEBO [Suspect]
     Indication: ANGIOMYOLIPOMA
     Dosage: CODE NOT BROKEN
     Route: 048
     Dates: start: 20111012
  3. BLINDED NO TREATMENT RECEIVED [Suspect]
     Indication: ANGIOMYOLIPOMA
     Dosage: CODE NOT BROKEN
     Route: 048
     Dates: start: 20111012
  4. BLINDED NO TREATMENT RECEIVED [Suspect]
     Dosage: CODE NOT BROKEN
     Route: 048
     Dates: start: 20090628, end: 20110928
  5. BLINDED PLACEBO [Suspect]
     Dosage: CODE NOT BROKEN
     Route: 048
     Dates: start: 20090628, end: 20110928
  6. AFINITOR [Suspect]
     Dosage: CODE NOT BROKEN
     Route: 048
     Dates: start: 20090628, end: 20110928

REACTIONS (1)
  - ABSCESS [None]
